FAERS Safety Report 11306581 (Version 7)
Quarter: 2018Q4

REPORT INFORMATION
  Report Type: Report from Study
  Country: PA (occurrence: PA)
  Receive Date: 20150723
  Receipt Date: 20181129
  Transmission Date: 20190204
  Serious: Yes (Hospitalization, Other)
  Sender: FDA-Public Use
  Company Number: PHHY2015PA088419

PATIENT
  Age: 57 Year
  Sex: Female

DRUGS (3)
  1. EXJADE [Suspect]
     Active Substance: DEFERASIROX
     Dosage: UNK
     Route: 048
     Dates: start: 20181112
  2. LASIX [Concomitant]
     Active Substance: FUROSEMIDE
     Indication: PRODUCT USED FOR UNKNOWN INDICATION
     Dosage: 1 DF, QD
     Route: 048
  3. EXJADE [Suspect]
     Active Substance: DEFERASIROX
     Indication: SICKLE CELL ANAEMIA
     Dosage: 3 DF, QD
     Route: 048

REACTIONS (24)
  - Bone pain [Unknown]
  - Gait inability [Unknown]
  - Spleen disorder [Unknown]
  - Haemoglobin decreased [Recovering/Resolving]
  - Bronchitis [Unknown]
  - Dysuria [Not Recovered/Not Resolved]
  - Abdominal pain upper [Recovered/Resolved]
  - Swelling [Not Recovered/Not Resolved]
  - Cerebrovascular accident [Recovering/Resolving]
  - Hemiparesis [Unknown]
  - Sickle cell anaemia with crisis [Unknown]
  - Fluid retention [Unknown]
  - Pancreatitis [Unknown]
  - Pain in extremity [Unknown]
  - Chest pain [Unknown]
  - Skin ulcer [Unknown]
  - Arthralgia [Unknown]
  - Hepatic siderosis [Unknown]
  - Discomfort [Unknown]
  - Cardiomegaly [Unknown]
  - Syncope [Unknown]
  - Malaise [Unknown]
  - Blood iron increased [Unknown]
  - Splenomegaly [Unknown]

NARRATIVE: CASE EVENT DATE: 2015
